FAERS Safety Report 8539357-9 (Version None)
Quarter: 2012Q3

REPORT INFORMATION
  Report Type: 
  Country: None (occurrence: None)
  Receive Date: 20120726
  Receipt Date: 20110727
  Transmission Date: 20120928
  Serious: No
  Sender: FDA-Public Use
  Company Number: US-ASTRAZENECA-2011SE45244

PATIENT

DRUGS (22)
  1. VENTOLIN HFA [Concomitant]
     Indication: COUGH
  2. VENTOLIN HFA [Concomitant]
     Indication: SEASONAL ALLERGY
  3. VITAMIN D [Concomitant]
  4. NYQUIL GEL CAPS [Concomitant]
  5. FUROSEMIDE [Concomitant]
     Indication: OEDEMA
  6. BUSPIRONE HCL [Concomitant]
  7. XANAX [Concomitant]
     Indication: MUSCLE SPASMS
  8. SEROQUEL XR [Suspect]
     Route: 048
     Dates: start: 20101112
  9. BENADRYL [Suspect]
     Route: 065
     Dates: start: 20090507
  10. NEXIUM [Concomitant]
     Indication: GASTROOESOPHAGEAL REFLUX DISEASE
  11. VENTOLIN HFA [Concomitant]
     Indication: WHEEZING
  12. IMODIUM [Concomitant]
     Indication: GASTROINTESTINAL DISORDER
  13. SENNA LAXATIVE [Concomitant]
     Indication: GASTROINTESTINAL DISORDER
  14. LAMICTAL [Concomitant]
     Indication: DEPRESSION
  15. VITAMIN AND MINERAL PRENATAL SUPPLEMENT W/ FOLIC ACID CAP [Concomitant]
     Indication: MINERAL SUPPLEMENTATION
  16. CALCIUM , VITAMIN D [Concomitant]
     Indication: BONE DENSITY ABNORMAL
  17. KLOR-CON [Concomitant]
     Indication: OEDEMA
  18. CELEXA [Concomitant]
     Indication: DEPRESSION
  19. PROMETHAZINE [Concomitant]
     Indication: NAUSEA
  20. HYOMAX-SL [Concomitant]
     Indication: ABDOMINAL PAIN
  21. SEROQUEL XR [Suspect]
     Indication: DEPRESSION
     Route: 048
     Dates: end: 20101112
  22. TYLENOL [Concomitant]
     Indication: PAIN

REACTIONS (1)
  - EPISTAXIS [None]
